FAERS Safety Report 20793056 (Version 1)
Quarter: 2022Q2

REPORT INFORMATION
  Report Type: Spontaneous
  Country: US (occurrence: US)
  Receive Date: 20220506
  Receipt Date: 20220506
  Transmission Date: 20220721
  Serious: Yes (Hospitalization, Other)
  Sender: FDA-Public Use
  Company Number: US-APOTEX-2022AP006703

PATIENT
  Age: 67 Year
  Sex: Female

DRUGS (2)
  1. FLUVOXAMINE [Interacting]
     Active Substance: FLUVOXAMINE
     Indication: COVID-19
     Dosage: UNK
     Route: 065
  2. THEOPHYLLINE [Interacting]
     Active Substance: THEOPHYLLINE
     Indication: Asthma
     Dosage: 600 MILLIGRAM, BID
     Route: 065

REACTIONS (5)
  - Hallucination [Recovered/Resolved]
  - Atrial fibrillation [Recovered/Resolved]
  - Toxicity to various agents [Recovered/Resolved]
  - Seizure [Recovered/Resolved]
  - Drug interaction [Recovered/Resolved]
